FAERS Safety Report 4443075-6 (Version None)
Quarter: 2004Q3

REPORT INFORMATION
  Report Type: 
  Country: None (occurrence: None)
  Receive Date: 20040908
  Receipt Date: 20040827
  Transmission Date: 20050211
  Serious: Yes (Death)
  Sender: FDA-Public Use
  Company Number: JP-JNJFOC-20040900931

PATIENT
  Sex: Male

DRUGS (12)
  1. FENTANYL [Suspect]
     Route: 062
  2. FENTANYL [Suspect]
     Indication: CANCER PAIN
     Route: 062
  3. MAGNESIUM OXIDE [Concomitant]
     Indication: CONSTIPATION
     Route: 049
  4. FAMOTIDINE [Concomitant]
     Indication: GASTRIC ULCER
     Route: 049
  5. TEPRENONE [Concomitant]
     Indication: GASTRIC ULCER
     Route: 049
  6. ASPIRIN [Concomitant]
     Indication: THROMBOSIS
     Route: 049
  7. METILDIGOXIN [Concomitant]
     Indication: ARRHYTHMIA
     Route: 049
  8. PROCHLORPERAZINE MALEATE [Concomitant]
     Route: 049
  9. FUROSEMIDE [Concomitant]
     Indication: PLEURAL EFFUSION
     Route: 049
  10. SPIRONOLACTONE [Concomitant]
     Indication: PLEURAL EFFUSION
     Route: 049
  11. MORPHINE HYDROCHLORIDE [Concomitant]
     Route: 049
  12. MORPHINE HYDROCHLORIDE [Concomitant]
     Indication: CANCER PAIN
     Route: 049

REACTIONS (1)
  - DEATH [None]
